FAERS Safety Report 14235789 (Version 2)
Quarter: 2017Q4

REPORT INFORMATION
  Report Type: Spontaneous
  Country: US (occurrence: US)
  Receive Date: 20171129
  Receipt Date: 20171214
  Transmission Date: 20180321
  Serious: No
  Sender: FDA-Public Use
  Company Number: US-AMGEN-USASP2017177598

PATIENT
  Age: 50 Year
  Sex: Male

DRUGS (3)
  1. ENBREL [Suspect]
     Active Substance: ETANERCEPT
     Dosage: UNK UNK, Q2WK
     Route: 065
  2. ENBREL [Suspect]
     Active Substance: ETANERCEPT
     Dosage: UNK
     Route: 065
  3. ENBREL [Suspect]
     Active Substance: ETANERCEPT
     Indication: ARTHRITIS REACTIVE
     Dosage: 50 MG, QWK
     Route: 065
     Dates: start: 2015

REACTIONS (7)
  - Food allergy [Unknown]
  - Malaise [Unknown]
  - Diarrhoea [Unknown]
  - Intentional product misuse [Unknown]
  - Arthritis reactive [Not Recovered/Not Resolved]
  - Off label use [Unknown]
  - Gastrointestinal disorder [Unknown]
